FAERS Safety Report 25069673 (Version 1)
Quarter: 2025Q1

REPORT INFORMATION
  Report Type: Spontaneous
  Country: DE (occurrence: DE)
  Receive Date: 20250312
  Receipt Date: 20250312
  Transmission Date: 20250408
  Serious: Yes (Hospitalization, Other)
  Sender: MYLAN
  Company Number: DE-SANDOZ-SDZ2025DE011172

PATIENT
  Sex: Male

DRUGS (28)
  1. PREGABALIN [Suspect]
     Active Substance: PREGABALIN
     Indication: Product used for unknown indication
  2. PREGABALIN [Suspect]
     Active Substance: PREGABALIN
  3. PREGABALIN [Suspect]
     Active Substance: PREGABALIN
     Route: 065
  4. PREGABALIN [Suspect]
     Active Substance: PREGABALIN
     Route: 065
  5. PREGABALIN [Suspect]
     Active Substance: PREGABALIN
  6. PREGABALIN [Suspect]
     Active Substance: PREGABALIN
  7. PREGABALIN [Suspect]
     Active Substance: PREGABALIN
     Route: 065
  8. PREGABALIN [Suspect]
     Active Substance: PREGABALIN
     Route: 065
  9. VENLAFAXINE [Suspect]
     Active Substance: VENLAFAXINE HYDROCHLORIDE
     Indication: Product used for unknown indication
  10. VENLAFAXINE [Suspect]
     Active Substance: VENLAFAXINE HYDROCHLORIDE
     Route: 065
  11. VENLAFAXINE [Suspect]
     Active Substance: VENLAFAXINE HYDROCHLORIDE
     Route: 065
  12. VENLAFAXINE [Suspect]
     Active Substance: VENLAFAXINE HYDROCHLORIDE
  13. CELECOXIB [Suspect]
     Active Substance: CELECOXIB
     Indication: Product used for unknown indication
     Dosage: 100 MG, QW (7 DAYS/ PER WEEK)
     Dates: start: 20230102
  14. CELECOXIB [Suspect]
     Active Substance: CELECOXIB
     Dosage: 100 MG, QW (7 DAYS/ PER WEEK)
     Route: 065
     Dates: start: 20230102
  15. CELECOXIB [Suspect]
     Active Substance: CELECOXIB
     Dosage: 100 MG, QW (7 DAYS/ PER WEEK)
     Route: 065
     Dates: start: 20230102
  16. CELECOXIB [Suspect]
     Active Substance: CELECOXIB
     Dosage: 100 MG, QW (7 DAYS/ PER WEEK)
     Dates: start: 20230102
  17. NALOXONE HYDROCHLORIDE\TILIDINE HYDROCHLORIDE [Suspect]
     Active Substance: NALOXONE HYDROCHLORIDE\TILIDINE HYDROCHLORIDE
     Indication: Product used for unknown indication
  18. NALOXONE HYDROCHLORIDE\TILIDINE HYDROCHLORIDE [Suspect]
     Active Substance: NALOXONE HYDROCHLORIDE\TILIDINE HYDROCHLORIDE
     Route: 065
  19. NALOXONE HYDROCHLORIDE\TILIDINE HYDROCHLORIDE [Suspect]
     Active Substance: NALOXONE HYDROCHLORIDE\TILIDINE HYDROCHLORIDE
     Route: 065
  20. NALOXONE HYDROCHLORIDE\TILIDINE HYDROCHLORIDE [Suspect]
     Active Substance: NALOXONE HYDROCHLORIDE\TILIDINE HYDROCHLORIDE
  21. LERCANIDIPINE [Suspect]
     Active Substance: LERCANIDIPINE
     Indication: Product used for unknown indication
  22. LERCANIDIPINE [Suspect]
     Active Substance: LERCANIDIPINE
     Route: 065
  23. LERCANIDIPINE [Suspect]
     Active Substance: LERCANIDIPINE
     Route: 065
  24. LERCANIDIPINE [Suspect]
     Active Substance: LERCANIDIPINE
  25. COSENTYX [Suspect]
     Active Substance: SECUKINUMAB
     Indication: Product used for unknown indication
     Dosage: 150 MG, Q28D,150MG SATURATION, THEN EVERY 4 WEEKS
     Dates: start: 20240126
  26. COSENTYX [Suspect]
     Active Substance: SECUKINUMAB
     Dosage: 150 MG, Q28D,150MG SATURATION, THEN EVERY 4 WEEKS
     Route: 065
     Dates: start: 20240126
  27. COSENTYX [Suspect]
     Active Substance: SECUKINUMAB
     Dosage: 150 MG, Q28D,150MG SATURATION, THEN EVERY 4 WEEKS
     Route: 065
     Dates: start: 20240126
  28. COSENTYX [Suspect]
     Active Substance: SECUKINUMAB
     Dosage: 150 MG, Q28D,150MG SATURATION, THEN EVERY 4 WEEKS
     Dates: start: 20240126

REACTIONS (1)
  - Diverticulitis intestinal perforated [Unknown]

NARRATIVE: CASE EVENT DATE: 20240427
